FAERS Safety Report 8307925-5 (Version None)
Quarter: 2012Q2

REPORT INFORMATION
  Report Type: 
  Country: None (occurrence: None)
  Receive Date: 20120424
  Receipt Date: 20120405
  Transmission Date: 20120825
  Serious: Yes (Hospitalization, Other)
  Sender: FDA-Public Use
  Company Number: US-GLAXOSMITHKLINE-A0882227B

PATIENT
  Age: 49 Year
  Sex: Female
  Weight: 65.8 kg

DRUGS (10)
  1. OMEPRAZOLE [Concomitant]
     Dosage: 40MG PER DAY
     Route: 048
  2. DOCETAXEL [Suspect]
     Indication: BREAST CANCER
     Dosage: 75MGK EVERY 3 WEEKS
     Dates: start: 20100512
  3. PHENERGAN HCL [Concomitant]
     Indication: NAUSEA
     Dosage: 25MG AS REQUIRED
     Route: 048
  4. CARBOPLATIN [Suspect]
     Indication: BREAST CANCER
     Route: 042
     Dates: start: 20100512
  5. GABAPENTIN [Concomitant]
     Dosage: 800MG TWICE PER DAY
     Route: 048
  6. PHENERGAN HCL [Concomitant]
     Indication: DYSPNOEA
     Route: 055
  7. LAPATINIB [Suspect]
     Indication: BREAST CANCER
     Dosage: 750MG PER DAY
     Route: 048
     Dates: start: 20100512, end: 20110406
  8. RADIOTHERAPY [Concomitant]
     Indication: BREAST CANCER
     Dosage: 6000CGY CUMULATIVE DOSE
     Route: 061
  9. TRASTUZUMAB [Suspect]
     Indication: BREAST CANCER
     Dosage: 4MGK CYCLIC
     Route: 042
     Dates: start: 20100512, end: 20110406
  10. PERCOCET [Concomitant]
     Indication: PAIN
     Route: 048

REACTIONS (7)
  - LIPASE INCREASED [None]
  - HYPERNATRAEMIA [None]
  - DIARRHOEA [None]
  - NAUSEA [None]
  - COLITIS [None]
  - ABDOMINAL PAIN [None]
  - DEHYDRATION [None]
